FAERS Safety Report 6655341-4 (Version None)
Quarter: 2010Q1

REPORT INFORMATION
  Report Type: 
  Country: None (occurrence: None)
  Receive Date: 20100329
  Receipt Date: 20100317
  Transmission Date: 20100710
  Serious: Yes (Other)
  Sender: FDA-Public Use
  Company Number: PHHY2010DE17067

PATIENT
  Age: 47 Year
  Sex: Female

DRUGS (1)
  1. TEGRETOL-XR [Suspect]
     Indication: CONVULSION
     Dosage: 1 TABLET (MORNING), 1.5 TABLETS (EVENING)

REACTIONS (2)
  - CONVULSION [None]
  - GASTRIC BYPASS [None]
